FAERS Safety Report 20894804 (Version 1)
Quarter: 2022Q2

REPORT INFORMATION
  Report Type: Spontaneous
  Country: US (occurrence: None)
  Receive Date: 20220527
  Receipt Date: 20220527
  Transmission Date: 20220720
  Serious: No
  Sender: FDA-Public Use
  Company Number: None

PATIENT
  Age: 64 Year
  Sex: Female

DRUGS (1)
  1. MVASI [Suspect]
     Active Substance: BEVACIZUMAB-AWWB
     Dosage: OTHER FREQUENCY : EVERY 21 DAYS;?
     Route: 042
     Dates: start: 20220413, end: 20220504

REACTIONS (2)
  - Urinary tract infection [None]
  - Recalled product administered [None]

NARRATIVE: CASE EVENT DATE: 20220418
